FAERS Safety Report 8843092 (Version 5)
Quarter: 2013Q2

REPORT INFORMATION
  Report Type: Spontaneous
  Country: US (occurrence: US)
  Receive Date: 20121016
  Receipt Date: 20130606
  Transmission Date: 20140414
  Serious: Yes (Hospitalization, Disabling, Other)
  Sender: FDA-Public Use
  Company Number: US-009507513-1210USA006569

PATIENT
  Sex: Female

DRUGS (8)
  1. FOSAMAX [Suspect]
     Indication: OSTEOPENIA
     Dosage: 35 MG, UNK
     Route: 048
     Dates: start: 20030217, end: 20060804
  2. FOSAMAX [Suspect]
     Dosage: 70 MG, UNK
     Route: 048
     Dates: start: 200609, end: 200803
  3. FOSAMAX [Suspect]
     Indication: OSTEOPENIA
     Dosage: 70 MG, UNK
     Route: 048
     Dates: start: 20080324, end: 200810
  4. FOSAMAX [Suspect]
     Dosage: 70 MG, UNK
     Route: 048
     Dates: start: 201003, end: 201010
  5. ALENDRONATE SODIUM [Suspect]
     Indication: OSTEOPENIA
     Dosage: 70 MG, UNK
     Route: 048
     Dates: start: 200812, end: 200909
  6. ALENDRONATE SODIUM [Suspect]
     Indication: OSTEOPENIA
     Dosage: 70 MG, UNK
     Route: 048
     Dates: start: 200910, end: 200912
  7. ALENDRONATE SODIUM [Suspect]
     Indication: OSTEOPENIA
     Dosage: 70 MG, UNK
     Route: 048
     Dates: start: 201001, end: 201003
  8. ALENDRONATE SODIUM [Suspect]
     Dosage: 70 MG, UNK
     Dates: start: 201012, end: 201206

REACTIONS (36)
  - Femur fracture [Not Recovered/Not Resolved]
  - Open reduction of fracture [Unknown]
  - Anaemia postoperative [Recovering/Resolving]
  - Fall [Unknown]
  - Fall [Unknown]
  - Fall [Unknown]
  - Spinal compression fracture [Unknown]
  - Transfusion [Unknown]
  - Fall [Unknown]
  - Skeletal injury [Unknown]
  - Depression [Unknown]
  - Anxiety [Unknown]
  - Tooth disorder [Unknown]
  - Tooth extraction [Unknown]
  - Periodontal operation [Unknown]
  - Oral surgery [Unknown]
  - Bladder disorder [Unknown]
  - Hypercholesterolaemia [Unknown]
  - Intervertebral disc degeneration [Unknown]
  - Diverticulum intestinal [Unknown]
  - Venous insufficiency [Unknown]
  - Acute sinusitis [Unknown]
  - Fatigue [Unknown]
  - Cataract [Unknown]
  - Haemorrhoids [Unknown]
  - Osteoarthritis [Unknown]
  - Carpal tunnel syndrome [Unknown]
  - Spinal column stenosis [Unknown]
  - Radiculitis lumbosacral [Unknown]
  - Osteoarthritis [Unknown]
  - Transient ischaemic attack [Unknown]
  - Glaucoma [Unknown]
  - Dyslipidaemia [Unknown]
  - Vertigo [Unknown]
  - Diarrhoea [Unknown]
  - Drug hypersensitivity [Unknown]
